FAERS Safety Report 17164431 (Version 1)
Quarter: 2019Q4

REPORT INFORMATION
  Report Type: Other
  Country: SE (occurrence: SE)
  Receive Date: 20191217
  Receipt Date: 20191217
  Transmission Date: 20200122
  Serious: Yes (Other)
  Sender: FDA-Public Use
  Company Number: SE-CELLTRION INC.-2019SE027263

PATIENT

DRUGS (1)
  1. RITEMVIA [Suspect]
     Active Substance: RITUXIMAB
     Indication: MULTIPLE SCLEROSIS
     Dosage: 500 MG
     Dates: start: 201811, end: 20191106

REACTIONS (2)
  - Product use in unapproved indication [Unknown]
  - Encephalitis enteroviral [Recovered/Resolved]

NARRATIVE: CASE EVENT DATE: 20190618
